FAERS Safety Report 7511063-9 (Version None)
Quarter: 2011Q2

REPORT INFORMATION
  Report Type: 
  Country: None (occurrence: None)
  Receive Date: 20110531
  Receipt Date: 20110516
  Transmission Date: 20111010
  Serious: Yes (Hospitalization)
  Sender: FDA-Public Use
  Company Number: CA-JNJFOC-20110507730

PATIENT
  Sex: Female
  Weight: 73 kg

DRUGS (15)
  1. NEXIUM [Concomitant]
  2. METOPROLOL TARTRATE [Concomitant]
  3. SUPEUDOL [Concomitant]
  4. LANSOPRAZOLE [Concomitant]
  5. PREDNISONE [Concomitant]
     Dosage: IN PM
  6. RISEDRONATE SODIUM [Concomitant]
  7. ZOPLICONE [Concomitant]
  8. PREDNISONE [Concomitant]
     Dosage: IN AM
  9. ASPIRIN [Concomitant]
  10. RAMIPRIL [Concomitant]
  11. NITROGLYCERIN [Concomitant]
  12. REMICADE [Suspect]
     Dosage: 13TH DOSE
     Route: 042
     Dates: start: 20110516
  13. REMICADE [Suspect]
     Dosage: 12TH DOSE
     Route: 042
     Dates: start: 20110323
  14. REMICADE [Suspect]
     Indication: CROHN'S DISEASE
     Route: 042
     Dates: start: 20091130
  15. CITALOPRAM HYDROBROMIDE [Concomitant]

REACTIONS (3)
  - VOMITING [None]
  - GAIT DISTURBANCE [None]
  - ARTHRALGIA [None]
